FAERS Safety Report 5671007-1 (Version None)
Quarter: 2008Q1

REPORT INFORMATION
  Report Type: 
  Country: None (occurrence: None)
  Receive Date: 20080318
  Receipt Date: 20080314
  Transmission Date: 20080703
  Serious: Yes (Hospitalization, Disabling, Other)
  Sender: FDA-Public Use
  Company Number: JP-ABBOTT-08P-087-0439537-00

PATIENT
  Sex: Female

DRUGS (7)
  1. CEFZON [Suspect]
     Indication: DRUG USE FOR UNKNOWN INDICATION
     Route: 048
     Dates: start: 20060703, end: 20060706
  2. PARACETAMOL [Suspect]
     Indication: PHARYNGITIS
     Route: 048
     Dates: start: 20060705, end: 20060706
  3. PL GRAN. [Suspect]
     Indication: PHARYNGITIS
     Route: 048
     Dates: start: 20060703, end: 20060706
  4. VEEN D [Suspect]
     Indication: PHARYNGITIS
     Route: 041
     Dates: start: 20060705, end: 20060705
  5. THIAMINE HCL [Suspect]
     Indication: PHARYNGITIS
     Route: 041
     Dates: start: 20060705, end: 20060705
  6. FLAVINE ADENINE DINUCLEOTIDE [Suspect]
     Indication: PHARYNGITIS
     Route: 041
     Dates: start: 20060705, end: 20060705
  7. ASCORBIC ACID [Suspect]
     Indication: PHARYNGITIS
     Route: 041
     Dates: start: 20060705, end: 20060705

REACTIONS (7)
  - ANOREXIA [None]
  - BODY TEMPERATURE INCREASED [None]
  - DEHYDRATION [None]
  - LIVER DISORDER [None]
  - ORAL HERPES [None]
  - TOXIC EPIDERMAL NECROLYSIS [None]
  - ULCERATIVE KERATITIS [None]
